FAERS Safety Report 18122177 (Version 1)
Quarter: 2020Q3

REPORT INFORMATION
  Report Type: Spontaneous
  Country: CN (occurrence: CN)
  Receive Date: 20200807
  Receipt Date: 20200807
  Transmission Date: 20201103
  Serious: Yes (Hospitalization, Other)
  Sender: FDA-Public Use
  Company Number: CN-BAXTER-2020BAX016054

PATIENT
  Age: 51 Year
  Sex: Female

DRUGS (4)
  1. CISPLATIN. [Suspect]
     Active Substance: CISPLATIN
     Dosage: DOSAGE FORM: LYOPHILIZED POWDER, SECOND COURSE, DAY 1 TO 5
     Route: 041
     Dates: start: 20200629, end: 20200703
  2. CISPLATIN. [Suspect]
     Active Substance: CISPLATIN
     Indication: BREAST CANCER
     Dosage: DOSAGE FORM: LYOPHILIZED POWDER, FIRST COURSE
     Route: 041
  3. HOLOXAN [Suspect]
     Active Substance: IFOSFAMIDE
     Indication: BREAST CANCER
     Dosage: FIRST COURSE
     Route: 041
  4. HOLOXAN [Suspect]
     Active Substance: IFOSFAMIDE
     Dosage: SECOND COURSE, DAY 1 TO 5
     Route: 041
     Dates: start: 20200629, end: 20200703

REACTIONS (2)
  - Cerebral haemorrhage [Recovering/Resolving]
  - Myelosuppression [Recovering/Resolving]

NARRATIVE: CASE EVENT DATE: 20200714
